FAERS Safety Report 5789898-2 (Version None)
Quarter: 2008Q2

REPORT INFORMATION
  Report Type: 
  Country: None (occurrence: None)
  Receive Date: 20080626
  Receipt Date: 20080624
  Transmission Date: 20081010
  Serious: Yes (Hospitalization, Other)
  Sender: FDA-Public Use
  Company Number: US-BRISTOL-MYERS SQUIBB COMPANY-14239198

PATIENT
  Age: 51 Year
  Sex: Female
  Weight: 91 kg

DRUGS (11)
  1. GLUCOVANCE [Suspect]
     Dosage: 1 DF = 5/500 UNITS NOT SPECIFIED, 2 TABS IN MORNING AND 2 IN EVENING
     Dates: start: 20080301
  2. SYNTHROID [Concomitant]
  3. CARDIZEM [Concomitant]
  4. HYDROCHLOROTHIAZIDE [Concomitant]
     Dosage: 1 DF = 20/25 UNITS NOT SPECIFIED
  5. CYCLOBENZAPRINE HCL [Concomitant]
     Dosage: FREQUENCY = 3 TIMES DAILY
  6. AMITRIPTYLINE HCL [Concomitant]
  7. HYDROCODONE [Concomitant]
  8. VITAMIN B COMPLEX CAP [Concomitant]
  9. CALTRATE [Concomitant]
  10. VITAMIN D [Concomitant]
  11. OMEGA-3 [Concomitant]

REACTIONS (2)
  - BLOOD TRIGLYCERIDES INCREASED [None]
  - SUPRAVENTRICULAR TACHYCARDIA [None]
